FAERS Safety Report 22022818 (Version 2)
Quarter: 2023Q1

REPORT INFORMATION
  Report Type: Report from Study
  Country: US (occurrence: US)
  Receive Date: 20230222
  Receipt Date: 20230331
  Transmission Date: 20230417
  Serious: Yes (Other)
  Sender: FDA-Public Use
  Company Number: US-JAZZ PHARMACEUTICALS-2023-US-003932

PATIENT
  Sex: Male
  Weight: 23 kg

DRUGS (9)
  1. EPIDIOLEX [Suspect]
     Active Substance: CANNABIDIOL
     Indication: Epilepsy
     Dosage: 1.5ML IN AM 2ML IN PM
     Route: 048
  2. EPIDIOLEX [Suspect]
     Active Substance: CANNABIDIOL
     Indication: Lennox-Gastaut syndrome
  3. FELBAMATE [Concomitant]
     Active Substance: FELBAMATE
     Indication: Product used for unknown indication
     Dosage: UNK
  4. CLOBAZAM [Concomitant]
     Active Substance: CLOBAZAM
     Indication: Product used for unknown indication
     Dosage: UNK
  5. ATOMOXETINE [Concomitant]
     Active Substance: ATOMOXETINE
     Indication: Product used for unknown indication
     Dosage: UNK
  6. LAMOTRIGINE [Concomitant]
     Active Substance: LAMOTRIGINE
     Indication: Product used for unknown indication
     Dosage: UNK
  7. FLINTSTONES [Concomitant]
     Route: 048
  8. LAMICTAL [Concomitant]
     Active Substance: LAMOTRIGINE
     Route: 048
  9. DIASTAT ACUDIAL [Concomitant]
     Active Substance: DIAZEPAM

REACTIONS (2)
  - Seizure [Not Recovered/Not Resolved]
  - Staphylococcal infection [Unknown]
